FAERS Safety Report 8525678 (Version 8)
Quarter: 2013Q4

REPORT INFORMATION
  Report Type: Spontaneous
  Country: US (occurrence: US)
  Receive Date: 20120423
  Receipt Date: 20131028
  Transmission Date: 20140711
  Serious: Yes (Hospitalization)
  Sender: FDA-Public Use
  Company Number: US-GLAXOSMITHKLINE-A0974392A

PATIENT
  Age: 71 Year
  Sex: Female
  Weight: 111.4 kg

DRUGS (2)
  1. AVANDIA [Suspect]
     Indication: DIABETES MELLITUS
     Dosage: 4MG TWICE PER DAY
     Route: 048
     Dates: start: 20000505, end: 2006
  2. AVANDAMET [Suspect]
     Indication: DIABETES MELLITUS
     Route: 048
     Dates: start: 200402, end: 2012

REACTIONS (11)
  - Cerebrovascular accident [Unknown]
  - Visual field defect [Unknown]
  - Heart injury [Unknown]
  - Hypertension [Unknown]
  - Hyperlipidaemia [Unknown]
  - Transient ischaemic attack [Unknown]
  - Oedema [Unknown]
  - Dyslipidaemia [Unknown]
  - Myocardial infarction [Unknown]
  - Cardiac failure congestive [Unknown]
  - Atrial fibrillation [Unknown]
